FAERS Safety Report 7436962-8 (Version None)
Quarter: 2011Q2

REPORT INFORMATION
  Report Type: 
  Country: None (occurrence: None)
  Receive Date: 20110426
  Receipt Date: 20110413
  Transmission Date: 20111010
  Serious: Yes (Hospitalization)
  Sender: FDA-Public Use
  Company Number: NL-NOVOPROD-326842

PATIENT
  Age: 60 Year
  Sex: Male
  Weight: 110 kg

DRUGS (5)
  1. GLIMEPIRIDE A [Concomitant]
     Dosage: 1 DF, QD
     Route: 065
     Dates: start: 20090101
  2. COZAAR [Concomitant]
     Dosage: 1 DF, QD
     Route: 065
  3. LOSARTAN POTASSIUM [Concomitant]
  4. VICTOZA [Suspect]
     Indication: TYPE 2 DIABETES MELLITUS
     Dosage: UNK
     Route: 065
     Dates: start: 20101012
  5. METFORMIN HCL [Concomitant]
     Dosage: 500 MG,  2 TIMES
     Route: 065
     Dates: start: 20080804

REACTIONS (1)
  - AMAUROSIS FUGAX [None]
